FAERS Safety Report 20940753 (Version 2)
Quarter: 2022Q3

REPORT INFORMATION
  Report Type: Report from Study
  Country: TH (occurrence: TH)
  Receive Date: 20220609
  Receipt Date: 20220711
  Transmission Date: 20221027
  Serious: Yes (Death, Hospitalization)
  Sender: FDA-Public Use
  Company Number: TH-NOVARTISPH-NVSC2022TH131150

PATIENT
  Age: 2 Year
  Sex: Female
  Weight: 12.1 kg

DRUGS (2)
  1. ZOLGENSMA [Suspect]
     Active Substance: ONASEMNOGENE ABEPARVOVEC-XIOI
     Indication: Muscular dystrophy
     Dosage: 68 ML, ONCE/SINGLE
     Route: 042
     Dates: start: 20211104
  2. ZOLGENSMA [Suspect]
     Active Substance: ONASEMNOGENE ABEPARVOVEC-XIOI
     Dosage: 70 ML
     Route: 041

REACTIONS (4)
  - Diarrhoea [Fatal]
  - Pulse absent [Fatal]
  - Fatigue [Fatal]
  - Cyanosis [Fatal]

NARRATIVE: CASE EVENT DATE: 20220605
